FAERS Safety Report 15753749 (Version 1)
Quarter: 2018Q4

REPORT INFORMATION
  Report Type: Spontaneous
  Country: IN (occurrence: IN)
  Receive Date: 20181222
  Receipt Date: 20181222
  Transmission Date: 20190205
  Serious: Yes (Hospitalization, Other)
  Sender: FDA-Public Use
  Company Number: IN-UNICHEM PHARMACEUTICALS (USA) INC-UCM201812-000353

PATIENT
  Age: 28 Year
  Sex: Female

DRUGS (2)
  1. AMLODIPINE [Suspect]
     Active Substance: AMLODIPINE BESYLATE
     Dosage: 5 MG (60 TABLETS)
  2. TELMISARTAN. [Suspect]
     Active Substance: TELMISARTAN
     Dosage: 40 MG (30 TABLETS)

REACTIONS (4)
  - Metabolic acidosis [Unknown]
  - Overdose [Unknown]
  - Shock [Unknown]
  - Vasoplegia syndrome [Unknown]
